FAERS Safety Report 21921481 (Version 2)
Quarter: 2023Q1

REPORT INFORMATION
  Report Type: Spontaneous
  Country: None (occurrence: US)
  Receive Date: 20230127
  Receipt Date: 20230322
  Transmission Date: 20230418
  Serious: Yes (Other)
  Sender: FDA-Public Use
  Company Number: US-Imprimis NJOF, LLC-2137194

PATIENT
  Sex: Female

DRUGS (1)
  1. BROMFENAC\MOXIFLOXACIN\PREDNISOLONE ACETATE [Suspect]
     Active Substance: BROMFENAC\MOXIFLOXACIN\PREDNISOLONE ACETATE
     Route: 047

REACTIONS (1)
  - Burning sensation [Unknown]
